FAERS Safety Report 6327508-6 (Version None)
Quarter: 2009Q3

REPORT INFORMATION
  Report Type: 
  Country: None (occurrence: None)
  Receive Date: 20090825
  Receipt Date: 20090817
  Transmission Date: 20100115
  Serious: Yes (Other)
  Sender: FDA-Public Use
  Company Number: CA-WYE-G04061909

PATIENT
  Age: 47 Year
  Sex: Female
  Weight: 63.56 kg

DRUGS (6)
  1. PRISTIQ [Suspect]
     Indication: DEPRESSION
     Route: 048
     Dates: start: 20090713, end: 20090716
  2. PRISTIQ [Suspect]
     Route: 048
     Dates: start: 20090717
  3. LYRICA [Concomitant]
     Indication: PAIN
     Route: 048
     Dates: start: 20090101
  4. CRESTOR [Concomitant]
     Indication: BLOOD CHOLESTEROL INCREASED
     Dosage: 10 MG EVERY
     Route: 048
     Dates: start: 20090101
  5. TRAMADOL HCL [Concomitant]
     Indication: PAIN
     Route: 048
     Dates: start: 20090703, end: 20090701
  6. TRAMADOL HCL [Concomitant]
     Route: 048
     Dates: start: 20090701

REACTIONS (1)
  - EYE PAIN [None]
